FAERS Safety Report 6605124-6 (Version None)
Quarter: 2010Q1

REPORT INFORMATION
  Report Type: 
  Country: None (occurrence: None)
  Receive Date: 20100226
  Receipt Date: 20100217
  Transmission Date: 20100710
  Serious: Yes (Hospitalization, Other)
  Sender: FDA-Public Use
  Company Number: US-ELI_LILLY_AND_COMPANY-US201002005309

PATIENT
  Sex: Female

DRUGS (6)
  1. HUMALOG [Suspect]
     Indication: DIABETES MELLITUS
     Dosage: 60 U, 3/D
  2. HUMULIN N [Suspect]
     Indication: DIABETES MELLITUS
  3. JANUVIA [Concomitant]
     Dosage: 100 MG, EACH MORNING
     Dates: start: 20100101
  4. LEVEMIR [Concomitant]
     Dosage: 80 U, 2/D
  5. ACTOS [Concomitant]
     Dates: start: 20100101
  6. METFORMIN HYDROCHLORIDE [Concomitant]
     Dates: end: 20100101

REACTIONS (15)
  - ANGINA PECTORIS [None]
  - ARTHRITIS [None]
  - BLOOD GLUCOSE INCREASED [None]
  - BRONCHITIS [None]
  - CORONARY ARTERIAL STENT INSERTION [None]
  - GLYCOSYLATED HAEMOGLOBIN INCREASED [None]
  - HYPOAESTHESIA [None]
  - INSULIN RESISTANCE [None]
  - MYOCARDIAL INFARCTION [None]
  - NEUROPATHY PERIPHERAL [None]
  - OEDEMA [None]
  - RENAL FAILURE [None]
  - SKIN CANCER [None]
  - URINARY TRACT OBSTRUCTION [None]
  - UTERINE CANCER [None]
